FAERS Safety Report 12249195 (Version 1)
Quarter: 2016Q2

REPORT INFORMATION
  Report Type: Spontaneous
  Country: US (occurrence: US)
  Receive Date: 20160408
  Receipt Date: 20160408
  Transmission Date: 20160815
  Serious: No
  Sender: FDA-Public Use
  Company Number: US-009507513-1604USA000258

PATIENT
  Sex: Female

DRUGS (1)
  1. ZOLINZA [Suspect]
     Active Substance: VORINOSTAT
     Indication: ANGIOCENTRIC LYMPHOMA
     Dosage: 300 MG, QD
     Route: 048

REACTIONS (3)
  - Pyrexia [Unknown]
  - Constipation [Unknown]
  - Blood creatinine increased [Unknown]
